FAERS Safety Report 21288944 (Version 1)
Quarter: 2022Q3

REPORT INFORMATION
  Report Type: Spontaneous
  Country: US (occurrence: US)
  Receive Date: 20220902
  Receipt Date: 20220902
  Transmission Date: 20221026
  Serious: No
  Sender: FDA-Public Use
  Company Number: US-ABBVIE-22K-163-4385320-00

PATIENT
  Sex: Female

DRUGS (1)
  1. IMBRUVICA [Suspect]
     Active Substance: IBRUTINIB
     Indication: B-cell small lymphocytic lymphoma
     Dosage: UNKNOWN
     Route: 048
     Dates: start: 2020

REACTIONS (7)
  - Lymphadenopathy [Recovering/Resolving]
  - Skin disorder [Not Recovered/Not Resolved]
  - Immunoglobulins decreased [Unknown]
  - Limb injury [Unknown]
  - Multiple injuries [Unknown]
  - Fatigue [Unknown]
  - Increased tendency to bruise [Not Recovered/Not Resolved]

NARRATIVE: CASE EVENT DATE: 20200101
